FAERS Safety Report 19786407 (Version 2)
Quarter: 2021Q3

REPORT INFORMATION
  Report Type: Spontaneous
  Country: IT (occurrence: IT)
  Receive Date: 20210903
  Receipt Date: 20210915
  Transmission Date: 20211014
  Serious: Yes (Hospitalization)
  Sender: FDA-Public Use
  Company Number: IT-TERSERA THERAPEUTICS LLC-2021TRS004111

PATIENT

DRUGS (7)
  1. PALBOCICLIB [Suspect]
     Active Substance: PALBOCICLIB
     Indication: HORMONE RECEPTOR POSITIVE HER2 NEGATIVE BREAST CANCER
     Dosage: 125 MILLIGRAM, QD (DAILY)
     Route: 048
  2. AMCENESTRANT. [Suspect]
     Active Substance: AMCENESTRANT
     Indication: HORMONE RECEPTOR POSITIVE HER2 NEGATIVE BREAST CANCER
     Dosage: 200 MILLIGRAM, QD (DAILY)
     Route: 048
  3. AMCENESTRANT. [Suspect]
     Active Substance: AMCENESTRANT
     Dosage: 2.5 MILLIGRAM, QD (DAILY)
     Route: 048
  4. AMCENESTRANT. [Suspect]
     Active Substance: AMCENESTRANT
     Dosage: 2.5 MILLIGRAM, QD (DAILY)
     Route: 048
  5. GOSERELIN [Suspect]
     Active Substance: GOSERELIN
     Indication: HORMONE RECEPTOR POSITIVE HER2 NEGATIVE BREAST CANCER
     Dosage: 3.6 MILLIGRAM, MONTHLY
     Route: 058
  6. AMCENESTRANT. [Suspect]
     Active Substance: AMCENESTRANT
     Dosage: 200 MILLIGRAM, QD (DAILY)
     Route: 048
  7. PALBOCICLIB [Suspect]
     Active Substance: PALBOCICLIB
     Dosage: 125 MILLIGRAM, QD (DAILY)
     Route: 048

REACTIONS (1)
  - Device related infection [Recovered/Resolved]

NARRATIVE: CASE EVENT DATE: 20210807
